FAERS Safety Report 9439293 (Version 1)
Quarter: 2013Q3

REPORT INFORMATION
  Report Type: Report from Study
  Country: US (occurrence: US)
  Receive Date: 20130804
  Receipt Date: 20130804
  Transmission Date: 20140515
  Serious: Yes (Hospitalization)
  Sender: FDA-Public Use
  Company Number: US-ROCHE-1253506

PATIENT
  Age: 30 Year
  Sex: Female

DRUGS (5)
  1. XOLAIR [Suspect]
     Indication: ASTHMA
     Route: 065
  2. XYZAL [Concomitant]
     Route: 065
  3. ALBUTEROL NEBULIZER [Concomitant]
     Indication: DYSPNOEA
     Route: 055
  4. DEXILANT [Concomitant]
     Route: 065
  5. ZYFLO [Concomitant]
     Route: 065

REACTIONS (9)
  - Catheter site infection [Recovered/Resolved]
  - Rhinitis allergic [Unknown]
  - Rhinorrhoea [Unknown]
  - Nasal congestion [Unknown]
  - Lacrimation increased [Unknown]
  - Ocular hyperaemia [Unknown]
  - Eye pruritus [Unknown]
  - Rhinitis [Unknown]
  - Dyspnoea [Unknown]
